FAERS Safety Report 4447946-6 (Version None)
Quarter: 2004Q3

REPORT INFORMATION
  Report Type: 
  Country: None (occurrence: None)
  Receive Date: 20040818
  Receipt Date: 20040329
  Transmission Date: 20050211
  Serious: No
  Sender: FDA-Public Use
  Company Number: 2004AC00062

PATIENT
  Age: 26 Year
  Sex: Female

DRUGS (1)
  1. CEFOTETAN [Suspect]
     Indication: INFECTION PROPHYLAXIS
     Dosage: 1 G IV
     Route: 042

REACTIONS (1)
  - HAEMOLYTIC ANAEMIA [None]
